FAERS Safety Report 10011515 (Version 2)
Quarter: 2014Q2

REPORT INFORMATION
  Report Type: Spontaneous
  Country: JP (occurrence: JP)
  Receive Date: 20140314
  Receipt Date: 20140410
  Transmission Date: 20141212
  Serious: Yes (Hospitalization)
  Sender: FDA-Public Use
  Company Number: JP-EISAI INC-E3810-06945-SPO-JP

PATIENT
  Age: 72 Year
  Sex: Female

DRUGS (4)
  1. RABEFINE [Suspect]
     Indication: HELICOBACTER INFECTION
     Dosage: UNKNOWN
     Route: 048
     Dates: start: 20140227, end: 20140305
  2. AMOXICILLIN [Suspect]
     Indication: HELICOBACTER INFECTION
     Dosage: UNKNOWN
     Route: 048
     Dates: start: 20140227, end: 20140305
  3. METRONIDAZOLE [Suspect]
     Indication: HELICOBACTER INFECTION
     Dosage: UNKNOWN
     Route: 048
     Dates: start: 20140227, end: 20140305
  4. CRESTOR [Concomitant]
     Indication: PRODUCT USED FOR UNKNOWN INDICATION
     Route: 048

REACTIONS (3)
  - Haematochezia [Recovered/Resolved]
  - Vomiting [Recovered/Resolved]
  - Abdominal pain [Recovered/Resolved]
